FAERS Safety Report 17232051 (Version 1)
Quarter: 2020Q1

REPORT INFORMATION
  Report Type: Spontaneous
  Country: US (occurrence: US)
  Receive Date: 20200103
  Receipt Date: 20200103
  Transmission Date: 20200409
  Serious: No
  Sender: FDA-Public Use
  Company Number: US-SA-2020SA001475

PATIENT
  Sex: Female

DRUGS (1)
  1. PRALUENT [Suspect]
     Active Substance: ALIROCUMAB
     Indication: BREAST CANCER FEMALE
     Dosage: 150 MG, QOW
     Route: 058
     Dates: start: 20190715

REACTIONS (2)
  - Product use in unapproved indication [Unknown]
  - White blood cell count decreased [Unknown]
